FAERS Safety Report 16207250 (Version 1)
Quarter: 2019Q2

REPORT INFORMATION
  Report Type: Spontaneous
  Country: GB (occurrence: GB)
  Receive Date: 20190417
  Receipt Date: 20190417
  Transmission Date: 20190711
  Serious: Yes (Life-Threatening, Hospitalization, Other)
  Sender: FDA-Public Use
  Company Number: GB-PFIZER INC-2019163605

PATIENT
  Age: 27 Year
  Sex: Female
  Weight: 97 kg

DRUGS (3)
  1. ALFENTANIL. [Suspect]
     Active Substance: ALFENTANIL
     Indication: INDUCTION OF ANAESTHESIA
     Dosage: 1 MG, UNK
     Route: 042
     Dates: start: 20190320, end: 20190320
  2. SUCCINYLCHOLINE CHLORIDE. [Suspect]
     Active Substance: SUCCINYLCHOLINE CHLORIDE
     Indication: INDUCTION OF ANAESTHESIA
     Dosage: 100 MG, UNK
     Route: 042
     Dates: start: 20190320, end: 20190320
  3. PROPOFOL. [Suspect]
     Active Substance: PROPOFOL
     Indication: INDUCTION OF ANAESTHESIA
     Dosage: 270 MG, UNK
     Route: 042
     Dates: start: 20190320, end: 20190320

REACTIONS (3)
  - Pulseless electrical activity [Recovered/Resolved]
  - Anaphylactic reaction [Not Recovered/Not Resolved]
  - Cardiac arrest [Recovered/Resolved with Sequelae]

NARRATIVE: CASE EVENT DATE: 20190320
